FAERS Safety Report 4707674-6 (Version None)
Quarter: 2005Q3

REPORT INFORMATION
  Report Type: 
  Country: None (occurrence: None)
  Receive Date: 20050705
  Receipt Date: 20050622
  Transmission Date: 20060218
  Serious: Yes (Hospitalization)
  Sender: FDA-Public Use
  Company Number: 2005090314

PATIENT
  Sex: Female

DRUGS (1)
  1. SOBELIN (CLINDAMYCIN PHOSPHATE) [Suspect]
     Indication: DENTAL OPERATION
     Dosage: 300 MG
     Dates: start: 20050504, end: 20050506

REACTIONS (3)
  - DIPLOPIA [None]
  - IVTH NERVE PARALYSIS [None]
  - MUSCULAR WEAKNESS [None]
